FAERS Safety Report 4629636-X (Version None)
Quarter: 2005Q2

REPORT INFORMATION
  Report Type: 
  Country: None (occurrence: None)
  Receive Date: 20050406
  Receipt Date: 20050323
  Transmission Date: 20051028
  Serious: Yes (Other)
  Sender: FDA-Public Use
  Company Number: 2005052347

PATIENT
  Age: 29 Year
  Sex: Male

DRUGS (1)
  1. ZITHROMAX [Suspect]
     Indication: CHLAMYDIAL INFECTION
     Dosage: 1000 MG (1000 MG, 1 IN 1 D), ORAL
     Route: 048
     Dates: start: 20050323, end: 20050323

REACTIONS (5)
  - ABDOMINAL PAIN UPPER [None]
  - ANURIA [None]
  - DEPRESSED LEVEL OF CONSCIOUSNESS [None]
  - PALLOR [None]
  - SHOCK [None]
